FAERS Safety Report 22529912 (Version 1)
Quarter: 2023Q2

REPORT INFORMATION
  Report Type: Spontaneous
  Country: US (occurrence: US)
  Receive Date: 20230607
  Receipt Date: 20230607
  Transmission Date: 20230721
  Serious: No
  Sender: FDA-Public Use
  Company Number: US-ELI_LILLY_AND_COMPANY-US202306003731

PATIENT

DRUGS (1)
  1. HUMALOG MIX75/25 [Suspect]
     Active Substance: INSULIN LISPRO
     Indication: Product used for unknown indication
     Dosage: 46 U, UNKNOWN
     Route: 065

REACTIONS (1)
  - Visual impairment [Unknown]
